FAERS Safety Report 24213527 (Version 1)
Quarter: 2024Q3

REPORT INFORMATION
  Report Type: Spontaneous
  Country: US (occurrence: US)
  Receive Date: 20240815
  Receipt Date: 20240815
  Transmission Date: 20241017
  Serious: No
  Sender: LUPIN
  Company Number: US-LUPIN PHARMACEUTICALS INC.-2024-07144

PATIENT

DRUGS (1)
  1. ALBUTEROL SULFATE [Suspect]
     Active Substance: ALBUTEROL SULFATE
     Indication: Dyspnoea
     Dosage: UNK ( 2 PUFFS EVERY 4 HOURS A DAY)
     Dates: start: 20240617

REACTIONS (5)
  - Dyspnoea [Unknown]
  - Condition aggravated [Unknown]
  - Device occlusion [Unknown]
  - Device delivery system issue [Unknown]
  - Drug dose omission by device [Unknown]
